FAERS Safety Report 8905260 (Version 2)
Quarter: 2012Q4

REPORT INFORMATION
  Report Type: 
  Country: CA (occurrence: CA)
  Receive Date: 20121112
  Receipt Date: 20121123
  Transmission Date: 20130627
  Serious: Yes (Hospitalization)
  Sender: FDA-Public Use
  Company Number: PHHY2012CA103229

PATIENT
  Age: 74 Year
  Sex: Female

DRUGS (2)
  1. SANDOSTATIN LAR [Suspect]
     Indication: PANCREATIC NEUROENDOCRINE TUMOUR METASTATIC
     Dosage: 30 mg once a month
     Route: 030
     Dates: start: 20121012
  2. SUTENT [Suspect]
     Dosage: 12.5 mg, UNK

REACTIONS (6)
  - Hypotension [Unknown]
  - Anaemia [Unknown]
  - Dizziness [Unknown]
  - Fatigue [Unknown]
  - Nausea [Unknown]
  - Pallor [Unknown]
